FAERS Safety Report 7275413-3 (Version None)
Quarter: 2011Q1

REPORT INFORMATION
  Report Type: 
  Country: None (occurrence: None)
  Receive Date: 20110202
  Receipt Date: 20110202
  Transmission Date: 20110831
  Serious: Yes (Hospitalization, Other)
  Sender: FDA-Public Use
  Company Number: None

PATIENT
  Sex: Female
  Weight: 84.8226 kg

DRUGS (3)
  1. ETHINYL ESTRADIOL [Concomitant]
  2. LO/OVRAL [Suspect]
     Indication: CONTRACEPTION
     Dosage: DAILY ORALLY
     Route: 048
  3. NORGESTREL [Concomitant]

REACTIONS (1)
  - DEEP VEIN THROMBOSIS [None]
